FAERS Safety Report 7748556 (Version 3)
Quarter: 2013Q1

REPORT INFORMATION
  Report Type: Spontaneous
  Country: US (occurrence: None)
  Receive Date: 20101210
  Receipt Date: 20121211
  Transmission Date: 20140127
  Serious: Yes (Other)
  Sender: FDA-Public Use
  Company Number: 2010US004933

PATIENT
  Age: 8 Year
  Sex: Female

DRUGS (3)
  1. PROTOPIC [Suspect]
     Indication: DERMATITIS ATOPIC
     Dosage: 0.005 %, TWICE DAILY WEEKDAYS, TOPICAL
     Route: 061
     Dates: start: 200308, end: 200806
  2. PROTOPIC [Suspect]
     Indication: ICHTHYOSIS
     Dosage: 0.005 %, TWICE DAILY WEEKDAYS, TOPICAL
     Route: 061
     Dates: start: 200308, end: 200806
  3. ACLOMETASONE [Concomitant]

REACTIONS (2)
  - Lentigo [None]
  - Melanocytic hyperplasia [None]
